FAERS Safety Report 21227457 (Version 1)
Quarter: 2022Q3

REPORT INFORMATION
  Report Type: Spontaneous
  Country: US (occurrence: US)
  Receive Date: 20220818
  Receipt Date: 20220818
  Transmission Date: 20221027
  Serious: Yes (Hospitalization, Other)
  Sender: FDA-Public Use
  Company Number: US-SA-SAC20220817001939

PATIENT
  Age: 46 Year
  Sex: Female

DRUGS (10)
  1. DUPIXENT [Suspect]
     Active Substance: DUPILUMAB
     Indication: Asthma
     Dosage: 300 MG, QOW
     Route: 058
  2. BIOTIN [Concomitant]
     Active Substance: BIOTIN
  3. CALCIUM CITRATE [Concomitant]
     Active Substance: CALCIUM CITRATE
  4. ASMANEX [Concomitant]
     Active Substance: MOMETASONE FUROATE
  5. VITAMINS [Concomitant]
     Active Substance: VITAMINS
  6. LEVALBUTEROL TARTRATE [Concomitant]
     Active Substance: LEVALBUTEROL TARTRATE
  7. TAR [Concomitant]
     Active Substance: TAR
  8. INH [Concomitant]
     Active Substance: ISONIAZID
     Dosage: 40 MG
  9. PANTOPRAZOLE SODIUM [Concomitant]
     Active Substance: PANTOPRAZOLE SODIUM
  10. XOPENEX [Concomitant]
     Active Substance: LEVALBUTEROL HYDROCHLORIDE
     Dosage: 40 MG, 1X

REACTIONS (3)
  - Gastric ulcer [Recovered/Resolved]
  - Intestinal obstruction [Recovered/Resolved]
  - Gastric bypass [Unknown]
